FAERS Safety Report 17553910 (Version 2)
Quarter: 2021Q2

REPORT INFORMATION
  Report Type: Spontaneous
  Country: US (occurrence: US)
  Receive Date: 20200318
  Receipt Date: 20210615
  Transmission Date: 20210716
  Serious: No
  Sender: FDA-Public Use
  Company Number: US-AUROBINDO-AUR-APL-2020-009008

PATIENT
  Sex: Female

DRUGS (1)
  1. ARGATROBAN SODIUM CHLORIDE 50MG/50ML [Suspect]
     Active Substance: ARGATROBAN
     Indication: PRODUCT USED FOR UNKNOWN INDICATION
     Dosage: UNK
     Route: 065

REACTIONS (3)
  - Skin reaction [Unknown]
  - Product substitution issue [Unknown]
  - Accidental exposure to product [Unknown]
